FAERS Safety Report 16601052 (Version 2)
Quarter: 2021Q3

REPORT INFORMATION
  Report Type: Spontaneous
  Country: US (occurrence: US)
  Receive Date: 20190719
  Receipt Date: 20210802
  Transmission Date: 20211014
  Serious: Yes (Hospitalization, Other)
  Sender: FDA-Public Use
  Company Number: US-TEVA-2019-US-1080436

PATIENT
  Age: 52 Year
  Sex: Male
  Weight: 62.5 kg

DRUGS (6)
  1. CHANTIX [Concomitant]
     Active Substance: VARENICLINE TARTRATE
     Indication: SMOKING CESSATION THERAPY
     Dosage: 25MG THAT INCREASES BY 1 INCREMENT FOR 30 DAYS.
     Route: 048
     Dates: start: 20121212
  2. VENTOLIN HFA [Concomitant]
     Active Substance: ALBUTEROL SULFATE
     Indication: ASTHMA
     Dosage: INHALE 2 PUFFS EVERY 4?6 HOURS BY INHALATION ROUTE
     Route: 065
     Dates: start: 20160510
  3. ZOLPIDEM TART 10MG [Concomitant]
     Indication: SLEEP DISORDER
     Route: 048
     Dates: start: 20140402
  4. AMLODIPINE W/VALSARTAN TEVA [Suspect]
     Active Substance: AMLODIPINE\VALSARTAN
     Indication: HYPERTENSION
     Dosage: 1 DOSAGE FORMS DAILY;  AMLODIPINE 10 MG /VALSARTAN 320 MG
     Route: 048
     Dates: start: 20170503, end: 20181025
  5. LOSARTAN POTASSIUM CAMBER [Suspect]
     Active Substance: LOSARTAN POTASSIUM
     Indication: HYPERTENSION
     Dosage: 100 MILLIGRAM DAILY;
     Route: 048
     Dates: start: 20160825, end: 20170331
  6. LOSARTAN POTASSIUM TORRENT [Suspect]
     Active Substance: LOSARTAN POTASSIUM
     Indication: HYPERTENSION
     Dosage: 100 MILLIGRAM DAILY;
     Route: 048
     Dates: start: 20161003, end: 20161230

REACTIONS (3)
  - Recalled product administered [Unknown]
  - Bladder cancer [Recovered/Resolved]
  - Cholecystitis [Recovered/Resolved]
